FAERS Safety Report 6120323-8 (Version None)
Quarter: 2009Q1

REPORT INFORMATION
  Report Type: 
  Country: None (occurrence: None)
  Receive Date: 20090312
  Receipt Date: 20090312
  Transmission Date: 20090719
  Serious: No
  Sender: FDA-Public Use
  Company Number: None

PATIENT
  Age: 52 Year
  Sex: Male
  Weight: 86.1834 kg

DRUGS (1)
  1. LISINOPRIL [Suspect]
     Indication: HYPOTENSION
     Dosage: 50MG
     Dates: start: 20050801, end: 20050802

REACTIONS (8)
  - DRUG PRESCRIBING ERROR [None]
  - HEADACHE [None]
  - HYPOTENSION [None]
  - IMPAIRED WORK ABILITY [None]
  - MEDICATION ERROR [None]
  - NERVE INJURY [None]
  - OVERDOSE [None]
  - VASCULAR INJURY [None]
